FAERS Safety Report 17922275 (Version 2)
Quarter: 2020Q3

REPORT INFORMATION
  Report Type: Report from Study
  Country: DK (occurrence: DK)
  Receive Date: 20200622
  Receipt Date: 20200626
  Transmission Date: 20201104
  Serious: Yes (Death)
  Sender: FDA-Public Use
  Company Number: DK-EMD SERONO-E2B_90078289

PATIENT
  Age: 79 Year
  Sex: Female
  Weight: 60 kg

DRUGS (11)
  1. GLUCOSAMINE [Concomitant]
     Active Substance: GLUCOSAMINE
     Indication: PRODUCT USED FOR UNKNOWN INDICATION
  2. AVELUMAB [Suspect]
     Active Substance: AVELUMAB
     Indication: CHOLANGIOCARCINOMA
     Dosage: 800 MG, DAY 1 AND DAY 15 OF EACH 28 DAY CYCLE
     Route: 041
     Dates: start: 20190924, end: 20200106
  3. GABAPENTIN. [Concomitant]
     Active Substance: GABAPENTIN
     Indication: PRODUCT USED FOR UNKNOWN INDICATION
  4. AVELUMAB [Suspect]
     Active Substance: AVELUMAB
     Dosage: 800 MG, DAY 1 AND DAY 15 OF EACH 28 DAY CYCLE
     Route: 041
     Dates: start: 20200304, end: 20200304
  5. PARACETAMOL [Concomitant]
     Active Substance: ACETAMINOPHEN
     Indication: PRODUCT USED FOR UNKNOWN INDICATION
  6. MORPHIN                            /00036302/ [Concomitant]
     Active Substance: MORPHINE SULFATE
     Indication: PRODUCT USED FOR UNKNOWN INDICATION
  7. TALAZOPARIB. [Suspect]
     Active Substance: TALAZOPARIB
     Dosage: 1 MG, ONCE A DAY
     Route: 048
     Dates: start: 20200304, end: 20200318
  8. OMEPRAZOL                          /00661201/ [Concomitant]
     Active Substance: OMEPRAZOLE
     Indication: PRODUCT USED FOR UNKNOWN INDICATION
  9. MACROGOL 3350 W/POTASSIUM CHLORIDE//01749801/ [Concomitant]
     Active Substance: POLYETHYLENE GLYCOL 3350\POTASSIUM CHLORIDE\SODIUM BICARBONATE\SODIUM CHLORIDE
     Indication: PRODUCT USED FOR UNKNOWN INDICATION
     Dosage: KALIUMCHLORID, MACROGOL 3350, NATRIUMCHLORID, NATRIUMHYDROGENCARBONA
  10. TALAZOPARIB. [Suspect]
     Active Substance: TALAZOPARIB
     Indication: CHOLANGIOCARCINOMA
     Dosage: 1 MG, ONCE A DAY
     Route: 048
     Dates: start: 20190924, end: 20200121
  11. LEVOTHYROXIN [Concomitant]
     Active Substance: LEVOTHYROXINE
     Indication: PRODUCT USED FOR UNKNOWN INDICATION

REACTIONS (1)
  - Neoplasm progression [Fatal]

NARRATIVE: CASE EVENT DATE: 20200616
